FAERS Safety Report 24537349 (Version 1)
Quarter: 2024Q4

REPORT INFORMATION
  Report Type: Report from Study
  Country: MX (occurrence: MX)
  Receive Date: 20241022
  Receipt Date: 20241022
  Transmission Date: 20250114
  Serious: Yes (Death)
  Sender: JOHNSON AND JOHNSON
  Company Number: MX-BAYER-2024A151123

PATIENT
  Age: 32 Year
  Sex: Male

DRUGS (1)
  1. VENTAVIS [Suspect]
     Active Substance: ILOPROST
     Indication: Product used for unknown indication
     Dosage: 5 UG, 9ID
     Route: 065
     Dates: start: 20240111

REACTIONS (1)
  - Death [Fatal]

NARRATIVE: CASE EVENT DATE: 20241018
